FAERS Safety Report 6180084-3 (Version None)
Quarter: 2009Q2

REPORT INFORMATION
  Report Type: 
  Country: None (occurrence: None)
  Receive Date: 20090505
  Receipt Date: 20081211
  Transmission Date: 20091009
  Serious: No
  Sender: FDA-Public Use
  Company Number: JP-BAYER-200813042BYL

PATIENT
  Age: 66 Year
  Sex: Male
  Weight: 76 kg

DRUGS (11)
  1. NEXAVAR [Suspect]
     Indication: RENAL CELL CARCINOMA STAGE IV
     Dosage: TOTAL DAILY DOSE: 800 MG  UNIT DOSE: 200 MG
     Route: 048
     Dates: start: 20080513
  2. BLOPRESS [Concomitant]
     Route: 048
     Dates: start: 20080809
  3. ARGAMATE [Concomitant]
     Route: 048
     Dates: start: 20080227
  4. LASIX [Concomitant]
     Route: 048
     Dates: start: 20080227
  5. TAGAMET [Concomitant]
     Route: 048
     Dates: start: 20080112, end: 20080527
  6. ZYLORIC [Concomitant]
     Route: 048
     Dates: start: 20080516
  7. ZYLORIC [Concomitant]
     Route: 048
     Dates: start: 20080507, end: 20080515
  8. URALYT [Concomitant]
     Route: 048
  9. GLUFAST [Concomitant]
     Route: 048
     Dates: start: 20070319
  10. ZEFNART [Concomitant]
     Dosage: UNK
     Route: 061
     Dates: start: 20080507
  11. KERATINAMIN [Concomitant]
     Dosage: UNK
     Route: 061
     Dates: start: 20080507

REACTIONS (5)
  - BLOOD AMYLASE INCREASED [None]
  - DUODENAL ULCER [None]
  - HYPERTENSION [None]
  - HYPOPHOSPHATAEMIA [None]
  - LIPASE INCREASED [None]
